FAERS Safety Report 11738567 (Version 1)
Quarter: 2015Q4

REPORT INFORMATION
  Report Type: Spontaneous
  Country: US (occurrence: US)
  Receive Date: 20151110
  Receipt Date: 20151110
  Transmission Date: 20160304
  Serious: No
  Sender: FDA-Public Use
  Company Number: US-ELI_LILLY_AND_COMPANY-US201208003202

PATIENT
  Sex: Female

DRUGS (1)
  1. FORTEO [Suspect]
     Active Substance: TERIPARATIDE
     Dosage: 20 UG, QD
     Dates: start: 20120731

REACTIONS (7)
  - Pollakiuria [Recovering/Resolving]
  - Dizziness [Recovering/Resolving]
  - Somnolence [Recovering/Resolving]
  - Feeling hot [Recovering/Resolving]
  - Palpitations [Recovering/Resolving]
  - Fatigue [Recovering/Resolving]
  - Headache [Recovering/Resolving]
